FAERS Safety Report 19292365 (Version 1)
Quarter: 2021Q2

REPORT INFORMATION
  Report Type: Other
  Country: CA (occurrence: CA)
  Receive Date: 20210524
  Receipt Date: 20210524
  Transmission Date: 20210717
  Serious: Yes (Hospitalization, Other)
  Sender: FDA-Public Use
  Company Number: CA-ROCHE-2211127

PATIENT
  Age: 75 Year
  Sex: Female

DRUGS (18)
  1. PREDNISONE. [Concomitant]
     Active Substance: PREDNISONE
     Route: 048
  2. CARVEDILOL. [Concomitant]
     Active Substance: CARVEDILOL
  3. FOLIC ACID. [Concomitant]
     Active Substance: FOLIC ACID
  4. PROLIA [Concomitant]
     Active Substance: DENOSUMAB
  5. RITUXAN [Suspect]
     Active Substance: RITUXIMAB
     Indication: POLYMYOSITIS
     Route: 042
     Dates: start: 201612
  6. ALLOPURINOL. [Concomitant]
     Active Substance: ALLOPURINOL
  7. ACETAMINOPHEN. [Concomitant]
     Active Substance: ACETAMINOPHEN
     Indication: PREMEDICATION
     Route: 048
     Dates: start: 20190219, end: 20191030
  8. RITUXAN [Suspect]
     Active Substance: RITUXIMAB
     Route: 042
     Dates: start: 20190219
  9. DIPHENHYDRAMINE HCL [Concomitant]
     Active Substance: DIPHENHYDRAMINE HYDROCHLORIDE
     Indication: PREMEDICATION
     Route: 048
     Dates: start: 20190219
  10. ASAPHEN [Concomitant]
     Active Substance: ASPIRIN
  11. GAMMAGLOBULIN [Concomitant]
     Active Substance: HUMAN IMMUNOGLOBULIN G
  12. ACETAMINOPHEN. [Concomitant]
     Active Substance: ACETAMINOPHEN
     Route: 048
  13. ROSUVASTATIN. [Concomitant]
     Active Substance: ROSUVASTATIN
  14. PANTOPRAZOLE [Concomitant]
     Active Substance: PANTOPRAZOLE
  15. ACETAMINOPHEN. [Concomitant]
     Active Substance: ACETAMINOPHEN
     Route: 048
     Dates: start: 20200605
  16. SYNTHROID [Concomitant]
     Active Substance: LEVOTHYROXINE SODIUM
  17. LORAZEPAM. [Concomitant]
     Active Substance: LORAZEPAM
     Route: 048
  18. METHYLPREDNISOLONE. [Concomitant]
     Active Substance: METHYLPREDNISOLONE
     Indication: PREMEDICATION
     Route: 042

REACTIONS (19)
  - Pain in extremity [Not Recovered/Not Resolved]
  - Heart rate decreased [Unknown]
  - Pneumonia [Unknown]
  - Injury [Unknown]
  - Pneumonia [Recovered/Resolved]
  - Blood pressure fluctuation [Unknown]
  - Blood pressure decreased [Unknown]
  - Blood pressure fluctuation [Unknown]
  - Blood pressure systolic increased [Unknown]
  - Pain [Unknown]
  - Off label use [Unknown]
  - Scratch [Recovered/Resolved]
  - Infusion related reaction [Unknown]
  - Skin lesion [Not Recovered/Not Resolved]
  - Blood pressure diastolic abnormal [Unknown]
  - Limb injury [Recovering/Resolving]
  - Mobility decreased [Unknown]
  - Neoplasm [Recovered/Resolved]
  - Oxygen saturation decreased [Unknown]

NARRATIVE: CASE EVENT DATE: 201703
